FAERS Safety Report 25552992 (Version 3)
Quarter: 2025Q3

REPORT INFORMATION
  Report Type: Report from Study
  Country: US (occurrence: US)
  Receive Date: 20250715
  Receipt Date: 20250924
  Transmission Date: 20251021
  Serious: Yes (Hospitalization, Other)
  Sender: TAKEDA
  Company Number: US-TAKEDA-2025TUS044958

PATIENT
  Age: 50 Year
  Sex: Female

DRUGS (4)
  1. TEDUGLUTIDE [Suspect]
     Active Substance: TEDUGLUTIDE
     Indication: Short-bowel syndrome
     Dosage: 0.38 MILLILITER, QD
     Dates: start: 202504
  2. TEDUGLUTIDE [Suspect]
     Active Substance: TEDUGLUTIDE
  3. TEDUGLUTIDE [Suspect]
     Active Substance: TEDUGLUTIDE
  4. TEDUGLUTIDE [Suspect]
     Active Substance: TEDUGLUTIDE

REACTIONS (12)
  - Colonic fistula [Unknown]
  - Fistula [Unknown]
  - Psoriasis [Unknown]
  - Systemic lupus erythematosus [Unknown]
  - Peripheral swelling [Unknown]
  - Vascular device infection [Unknown]
  - Cough [Unknown]
  - Intestinal obstruction [Unknown]
  - Device occlusion [Unknown]
  - Device malfunction [Unknown]
  - Nausea [Unknown]
  - Abdominal pain [Unknown]

NARRATIVE: CASE EVENT DATE: 20250722
